FAERS Safety Report 21283413 (Version 1)
Quarter: 2022Q3

REPORT INFORMATION
  Report Type: Spontaneous
  Country: US (occurrence: None)
  Receive Date: 20220831
  Receipt Date: 20220831
  Transmission Date: 20221027
  Serious: Yes (Other)
  Sender: FDA-Public Use
  Company Number: None

PATIENT
  Age: 76 Year
  Sex: Male

DRUGS (14)
  1. OPSUMIT [Suspect]
     Active Substance: MACITENTAN
     Indication: Pulmonary arterial hypertension
     Dosage: FREQUENCY : DAILY;?
     Route: 048
     Dates: start: 20200520
  2. TADALAFIL [Concomitant]
     Active Substance: TADALAFIL
  3. BUMETANIDE [Concomitant]
     Active Substance: BUMETANIDE
  4. APIXABAN [Concomitant]
     Active Substance: APIXABAN
  5. CLONAZEPAM [Concomitant]
     Active Substance: CLONAZEPAM
  6. INSULIN LISPRO [Concomitant]
     Active Substance: INSULIN LISPRO
  7. NORCO [Concomitant]
     Active Substance: ACETAMINOPHEN\HYDROCODONE BITARTRATE
  8. AMIODARONE [Concomitant]
     Active Substance: AMIODARONE
  9. ATORVASTATIN [Concomitant]
     Active Substance: ATORVASTATIN
  10. GABAPENTIN [Concomitant]
     Active Substance: GABAPENTIN
  11. WIXELA INHUB [Concomitant]
     Active Substance: FLUTICASONE PROPIONATE\SALMETEROL XINAFOATE
  12. SPIRIVA RESPIMAT [Concomitant]
     Active Substance: TIOTROPIUM BROMIDE
  13. LEVALBUTEROL INHL NEB SOLN [Concomitant]
  14. MAGNESIUM OXIDE [Concomitant]
     Active Substance: MAGNESIUM OXIDE

REACTIONS (3)
  - Fall [None]
  - Head injury [None]
  - Skin laceration [None]

NARRATIVE: CASE EVENT DATE: 20220724
